FAERS Safety Report 6336408-7 (Version None)
Quarter: 2009Q3

REPORT INFORMATION
  Report Type: 
  Country: None (occurrence: None)
  Receive Date: 20090828
  Receipt Date: 20090817
  Transmission Date: 20100115
  Serious: Yes (Hospitalization)
  Sender: FDA-Public Use
  Company Number: GB-DEXPHARM-20091210

PATIENT
  Sex: Male

DRUGS (1)
  1. CHLORHEXIDINE GLUCONATE [Suspect]
     Dosage: DOSE: 4 % PERCENT

REACTIONS (4)
  - ABDOMINAL PAIN UPPER [None]
  - ASPIRATION [None]
  - INCORRECT ROUTE OF DRUG ADMINISTRATION [None]
  - LOWER RESPIRATORY TRACT INFECTION [None]
